FAERS Safety Report 4519006-7 (Version None)
Quarter: 2004Q4

REPORT INFORMATION
  Report Type: 
  Country: None (occurrence: None)
  Receive Date: 20041203
  Receipt Date: 20041203
  Transmission Date: 20050328
  Serious: Yes (Other)
  Sender: FDA-Public Use
  Company Number: None

PATIENT
  Age: 40 Year
  Sex: Female
  Weight: 55.3388 kg

DRUGS (1)
  1. CELEXA [Suspect]
     Indication: DEPRESSION
     Dosage: 30MG  , 1 X DAY  ORALLY
     Route: 048

REACTIONS (16)
  - ABNORMAL DREAMS [None]
  - ANHEDONIA [None]
  - DEPRESSION [None]
  - DISTURBANCE IN ATTENTION [None]
  - DIZZINESS [None]
  - FEELING ABNORMAL [None]
  - FEELINGS OF WORTHLESSNESS [None]
  - HEADACHE [None]
  - HYPERHIDROSIS [None]
  - INSOMNIA [None]
  - PARAESTHESIA ORAL [None]
  - SELF ESTEEM DECREASED [None]
  - SOMNOLENCE [None]
  - SUICIDAL IDEATION [None]
  - UNEMPLOYMENT [None]
  - WEIGHT INCREASED [None]
